FAERS Safety Report 8922603 (Version 2)
Quarter: 2012Q4

REPORT INFORMATION
  Report Type: 
  Country: US (occurrence: US)
  Receive Date: 20121123
  Receipt Date: 20121130
  Transmission Date: 20130627
  Serious: Yes (Death, Other)
  Sender: FDA-Public Use
  Company Number: PHEH2012US022590

PATIENT
  Sex: Male

DRUGS (1)
  1. EXJADE [Suspect]
     Indication: MYELODYSPLASTIC SYNDROME
     Dosage: 3 DF DAILY
     Route: 048
     Dates: start: 20121107

REACTIONS (10)
  - Myelodysplastic syndrome [Fatal]
  - Acute myeloid leukaemia [Fatal]
  - Blast cells [Unknown]
  - Anaemia [Unknown]
  - Platelet count decreased [Unknown]
  - Dysplasia [Unknown]
  - Hyperplasia [Unknown]
  - Bone marrow failure [Unknown]
  - Thrombocytopenia [Unknown]
  - Neutropenia [Unknown]
